FAERS Safety Report 7518787-8 (Version None)
Quarter: 2011Q2

REPORT INFORMATION
  Report Type: 
  Country: None (occurrence: None)
  Receive Date: 20110602
  Receipt Date: 20110530
  Transmission Date: 20111010
  Serious: No
  Sender: FDA-Public Use
  Company Number: US-PFIZER INC-2011116879

PATIENT
  Sex: Female
  Weight: 85.261 kg

DRUGS (2)
  1. ADVIL LIQUI-GELS [Suspect]
     Indication: PAIN
     Dosage: 400 MG, 2X/DAY
     Route: 048
  2. ADVIL LIQUI-GELS [Suspect]
     Indication: NEUROPATHY PERIPHERAL

REACTIONS (2)
  - TINNITUS [None]
  - GLYCOSYLATED HAEMOGLOBIN INCREASED [None]
